FAERS Safety Report 9356137 (Version 1)
Quarter: 2013Q2

REPORT INFORMATION
  Report Type: Spontaneous
  Country: US (occurrence: US)
  Receive Date: 20130619
  Receipt Date: 20130619
  Transmission Date: 20140414
  Serious: Yes (Hospitalization)
  Sender: FDA-Public Use
  Company Number: US-GLAXOSMITHKLINE-A0798108A

PATIENT
  Age: 73 Year
  Sex: Male

DRUGS (11)
  1. AVANDIA [Suspect]
     Indication: DIABETES MELLITUS
     Dosage: 4MG TWICE PER DAY
     Route: 048
     Dates: start: 20041213
  2. NITROGLYCERIN [Concomitant]
  3. METOPROLOL [Concomitant]
  4. ZOCOR [Concomitant]
  5. GLYBURIDE [Concomitant]
  6. PLAVIX [Concomitant]
  7. ALLOPURINOL [Concomitant]
  8. ZETIA [Concomitant]
  9. METHOTREXATE [Concomitant]
  10. ASPIRIN [Concomitant]
  11. NEXIUM [Concomitant]

REACTIONS (3)
  - Myocardial infarction [Recovering/Resolving]
  - Coronary artery bypass [Unknown]
  - Coronary artery disease [Unknown]
